FAERS Safety Report 5839331-7 (Version None)
Quarter: 2008Q3

REPORT INFORMATION
  Report Type: 
  Country: None (occurrence: None)
  Receive Date: 20080808
  Receipt Date: 20080729
  Transmission Date: 20090109
  Serious: Yes (Other)
  Sender: FDA-Public Use
  Company Number: FR-PFIZER INC-2008064183

PATIENT
  Sex: Male

DRUGS (1)
  1. VFEND [Suspect]

REACTIONS (2)
  - PHOTOSENSITIVITY REACTION [None]
  - PORPHYRIA [None]
